FAERS Safety Report 13815894 (Version 9)
Quarter: 2018Q4

REPORT INFORMATION
  Report Type: Report from Study
  Country: BR (occurrence: BR)
  Receive Date: 20170731
  Receipt Date: 20181213
  Transmission Date: 20190204
  Serious: Yes (Hospitalization, Other)
  Sender: FDA-Public Use
  Company Number: PHHY2017BR111056

PATIENT
  Age: 58 Year
  Sex: Female
  Weight: 59 kg

DRUGS (11)
  1. FOLIC ACID. [Concomitant]
     Active Substance: FOLIC ACID
     Indication: OSTEOPOROSIS
     Dosage: 1 DF, QD 10 YEARS AGO
     Route: 048
  2. AMITRIPTYLINE [Concomitant]
     Active Substance: AMITRIPTYLINE
     Indication: ANXIETY
     Dosage: 2 DF, QD 6 YEARS AGO
     Route: 048
  3. SIMVASTATIN. [Concomitant]
     Active Substance: SIMVASTATIN
     Indication: BLOOD CHOLESTEROL INCREASED
     Dosage: 1 DF, QD 6 YEARS AGO
     Route: 048
  4. CALCIUM CARBONATE/VITAMIN D3 [Concomitant]
     Active Substance: CALCIUM CARBONATE\CHOLECALCIFEROL
     Indication: OSTEOPOROSIS
     Dosage: 1 DF (1250MG/400IU), QD (20 YEARS AGO)
     Route: 048
  5. CLONAZEPAM. [Concomitant]
     Active Substance: CLONAZEPAM
     Indication: INSOMNIA
     Dosage: 20 DRP, QD 6 YEARS AGO
     Route: 048
  6. ACLASTA [Suspect]
     Active Substance: ZOLEDRONIC ACID
     Indication: OSTEOPOROSIS
     Dosage: 1 DF, Q12MO
     Route: 042
     Dates: start: 201705
  7. ETANERCEPT [Suspect]
     Active Substance: ETANERCEPT
     Indication: PRODUCT USED FOR UNKNOWN INDICATION
     Dosage: 1 DF, QW (1 YEAR AGO)
     Route: 030
  8. ENCORTON [Concomitant]
     Active Substance: PREDNISONE
     Indication: PRODUCT USED FOR UNKNOWN INDICATION
     Dosage: 1 DF, QW (10 YEARS)
     Route: 048
  9. IBUPROFEN. [Concomitant]
     Active Substance: IBUPROFEN
     Indication: PAIN
     Dosage: 3 DF, QD MORE THAN 15 YEARS AGO
     Route: 048
  10. METHOTREXATE. [Concomitant]
     Active Substance: METHOTREXATE
     Indication: MULTIPLE SCLEROSIS
     Dosage: 3 DF, BIW 8 YEARS AGO
     Route: 048
  11. PARACETAMOL CODEINE [Concomitant]
     Active Substance: ACETAMINOPHEN\CODEINE PHOSPHATE
     Indication: PAIN
     Dosage: 3 DF, QD MORE THAN 15 YEARS AGO
     Route: 048

REACTIONS (18)
  - Malaise [Unknown]
  - Pyrexia [Unknown]
  - Swelling [Unknown]
  - Pain in extremity [Not Recovered/Not Resolved]
  - Dyspnoea [Unknown]
  - Grip strength decreased [Unknown]
  - Chest pain [Not Recovered/Not Resolved]
  - Gait disturbance [Not Recovered/Not Resolved]
  - Fall [Unknown]
  - Arthralgia [Not Recovered/Not Resolved]
  - Dizziness [Unknown]
  - Cerebrovascular accident [Not Recovered/Not Resolved]
  - Pain [Not Recovered/Not Resolved]
  - Hepatic cyst [Unknown]
  - Tendonitis [Not Recovered/Not Resolved]
  - Tendon injury [Not Recovered/Not Resolved]
  - Sternal fracture [Not Recovered/Not Resolved]
  - Limb injury [Unknown]

NARRATIVE: CASE EVENT DATE: 201806
